FAERS Safety Report 25340568 (Version 2)
Quarter: 2025Q3

REPORT INFORMATION
  Report Type: Spontaneous
  Country: US (occurrence: US)
  Receive Date: 20250521
  Receipt Date: 20250810
  Transmission Date: 20251021
  Serious: No
  Sender: ALEXION PHARMACEUTICALS
  Company Number: US-AstraZeneca-CH-00870883A

PATIENT
  Sex: Female

DRUGS (1)
  1. BRILINTA [Suspect]
     Active Substance: TICAGRELOR
     Indication: Stent placement
     Route: 065
     Dates: start: 20250502

REACTIONS (5)
  - Adverse drug reaction [Unknown]
  - Anxiety [Unknown]
  - Heart rate increased [Unknown]
  - Atrial flutter [Unknown]
  - Dyspnoea [Unknown]
